FAERS Safety Report 16642981 (Version 1)
Quarter: 2019Q3

REPORT INFORMATION
  Report Type: Spontaneous
  Country: ES (occurrence: ES)
  Receive Date: 20190729
  Receipt Date: 20190729
  Transmission Date: 20191004
  Serious: Yes (Hospitalization)
  Sender: FDA-Public Use
  Company Number: ES-PRAGMA PHARMACEUTICALS, LLC-2019PRG00206

PATIENT
  Age: 58 Year
  Sex: Male

DRUGS (3)
  1. AMOXICILLIN-CLAVULANATE [Suspect]
     Active Substance: AMOXICILLIN\CLAVULANIC ACID
     Dosage: (FIRST DENTAL PROCEDURE)
     Route: 065
  2. AMOXICILLIN-CLAVULANATE [Suspect]
     Active Substance: AMOXICILLIN\CLAVULANIC ACID
     Dosage: (?WHITLOW ON HIS TOE?)
     Route: 048
  3. AMOXICILLIN-CLAVULANATE [Suspect]
     Active Substance: AMOXICILLIN\CLAVULANIC ACID
     Dosage: (SECOND DENTAL PROCEDURE)
     Route: 065

REACTIONS (1)
  - Meningitis aseptic [Unknown]
